FAERS Safety Report 8123837-4 (Version None)
Quarter: 2012Q1

REPORT INFORMATION
  Report Type: 
  Country: None (occurrence: None)
  Receive Date: 20120209
  Receipt Date: 20120130
  Transmission Date: 20120608
  Serious: Yes (Hospitalization, Other)
  Sender: FDA-Public Use
  Company Number: US-ASTRAZENECA-2010SE18633

PATIENT
  Age: 58 Year
  Sex: Female

DRUGS (3)
  1. CRESTOR [Suspect]
     Route: 048
  2. SYMBICORT [Suspect]
     Dosage: 80/4.5 MCG UNKNOWN
     Route: 055
  3. SYMBICORT [Suspect]
     Dosage: 160/4.5 MCG UNKNOWN
     Route: 055

REACTIONS (10)
  - DYSPNOEA [None]
  - CHRONIC OBSTRUCTIVE PULMONARY DISEASE [None]
  - PNEUMONIA BACTERIAL [None]
  - OXYGEN SATURATION DECREASED [None]
  - ARTERIOSCLEROSIS CORONARY ARTERY [None]
  - MALAISE [None]
  - DIABETES MELLITUS [None]
  - COUGH [None]
  - DRUG DOSE OMISSION [None]
  - CHEST PAIN [None]
